FAERS Safety Report 4534676-5 (Version None)
Quarter: 2004Q4

REPORT INFORMATION
  Report Type: 
  Country: None (occurrence: None)
  Receive Date: 20041214
  Receipt Date: 20040901
  Transmission Date: 20050328
  Serious: No
  Sender: FDA-Public Use
  Company Number: USA040669859

PATIENT
  Age: 64 Year
  Sex: Male

DRUGS (1)
  1. CIALIS [Suspect]
     Dosage: 10 MG
     Dates: start: 20040610

REACTIONS (1)
  - THERAPEUTIC RESPONSE DECREASED [None]
